FAERS Safety Report 5699725-X (Version None)
Quarter: 2008Q2

REPORT INFORMATION
  Report Type: 
  Country: None (occurrence: None)
  Receive Date: 20080410
  Receipt Date: 20080331
  Transmission Date: 20081010
  Serious: Yes (Other)
  Sender: FDA-Public Use
  Company Number: PHHY2008CA04343

PATIENT

DRUGS (3)
  1. DIOVAN [Suspect]
     Indication: HYPERTENSION
     Dosage: 80 MG
     Route: 048
  2. DIURETICS [Concomitant]
     Route: 048
  3. CALCIUM CHANNEL BLOCKERS [Concomitant]
     Route: 048

REACTIONS (1)
  - MICROALBUMINURIA [None]
